FAERS Safety Report 23859503 (Version 1)
Quarter: 2024Q2

REPORT INFORMATION
  Report Type: Spontaneous
  Country: US (occurrence: None)
  Receive Date: 20240515
  Receipt Date: 20240515
  Transmission Date: 20240716
  Serious: No
  Sender: FDA-Public Use
  Company Number: None

PATIENT
  Age: 67 Year
  Sex: Male
  Weight: 79.38 kg

DRUGS (3)
  1. TERIPARATIDE [Suspect]
     Active Substance: TERIPARATIDE
     Indication: Rheumatoid arthritis
     Dosage: OTHER STRENGTH : 600 MCG/2.4ML ;?FREQUENCY : DAILY;?
     Route: 058
     Dates: start: 202312
  2. TERIPARATIDE [Suspect]
     Active Substance: TERIPARATIDE
     Indication: Osteoporosis
  3. TERIPARATIDE [Suspect]
     Active Substance: TERIPARATIDE
     Indication: Rheumatoid arthritis

REACTIONS (1)
  - Death [None]
